FAERS Safety Report 10028456 (Version 1)
Quarter: 2014Q1

REPORT INFORMATION
  Report Type: Spontaneous
  Country: US (occurrence: US)
  Receive Date: 20140321
  Receipt Date: 20140321
  Transmission Date: 20141002
  Serious: Yes (Other)
  Sender: FDA-Public Use
  Company Number: US-BRISTOL-MYERS SQUIBB COMPANY-20475133

PATIENT
  Age: 86 Year
  Sex: Female
  Weight: 48 kg

DRUGS (6)
  1. ELIQUIS [Suspect]
  2. SIMVASTATIN [Interacting]
  3. TOPROL XL [Concomitant]
  4. OMEPRAZOLE [Concomitant]
  5. GABAPENTIN [Concomitant]
     Route: 048
  6. TRAMADOL [Concomitant]

REACTIONS (2)
  - Myopathy [Unknown]
  - Drug interaction [Unknown]
